FAERS Safety Report 9713942 (Version 1)
Quarter: 2013Q4

REPORT INFORMATION
  Report Type: Spontaneous
  Country: US (occurrence: US)
  Receive Date: 20131126
  Receipt Date: 20131126
  Transmission Date: 20140711
  Serious: No
  Sender: FDA-Public Use
  Company Number: US-GILEAD-2008-0018159

PATIENT
  Sex: Female
  Weight: 70.76 kg

DRUGS (13)
  1. LETAIRIS [Suspect]
     Indication: PULMONARY ARTERIAL HYPERTENSION
     Route: 048
     Dates: start: 20070831
  2. VENTAVIS [Concomitant]
     Dosage: AS DIRECTED
  3. FUROSEMIDE [Concomitant]
     Dosage: AS DIRECTED
     Route: 048
  4. ATENOLOL [Concomitant]
     Dosage: AS DIRECTED
     Route: 048
  5. NIFEDIPINE ER [Concomitant]
     Dosage: AS DIRECTED
     Route: 048
  6. ATACAND [Concomitant]
     Dosage: AS DIRECTED
     Route: 048
  7. PROVENTIL [Concomitant]
     Dosage: AS DIRECTED
  8. K-DUR [Concomitant]
     Dosage: AS DIRECTED
     Route: 048
  9. SYNTHROID [Concomitant]
     Dosage: AS DIRECTED
     Route: 048
  10. LIPITOR [Concomitant]
     Dosage: AS DIRECTED
     Route: 048
  11. MELOXICAM [Concomitant]
     Dosage: AS DIRECTED
     Route: 048
  12. CALTRATE [Concomitant]
     Dosage: AS DIRECTED
     Route: 048
  13. FOLIC ACID [Concomitant]
     Dosage: AS DIRECTED
     Route: 048

REACTIONS (2)
  - Dizziness [None]
  - Throat irritation [None]
